FAERS Safety Report 4959447-7 (Version None)
Quarter: 2006Q1

REPORT INFORMATION
  Report Type: 
  Country: None (occurrence: None)
  Receive Date: 20060331
  Receipt Date: 20051005
  Transmission Date: 20060701
  Serious: Yes (Hospitalization, Other)
  Sender: FDA-Public Use
  Company Number: US-MERCK-0510USA03938

PATIENT
  Age: 73 Year
  Sex: Female
  Weight: 61 kg

DRUGS (19)
  1. VIOXX [Suspect]
     Indication: ARTHRITIS
     Route: 048
     Dates: start: 20010801, end: 20041010
  2. VIOXX [Suspect]
     Indication: PAIN
     Route: 048
     Dates: start: 20010801, end: 20041010
  3. PROCARDIA XL [Concomitant]
     Indication: HYPERTENSION
     Route: 065
     Dates: start: 19960101
  4. LIPITOR [Concomitant]
     Indication: BLOOD CHOLESTEROL INCREASED
     Route: 065
     Dates: start: 20040501
  5. NIFEDIPINE [Concomitant]
     Indication: HYPERTENSION
     Route: 065
     Dates: start: 19960101
  6. NIFEDIPINE [Concomitant]
     Indication: HYPERTENSION
     Route: 065
     Dates: start: 19960101
  7. AGGRENOX [Concomitant]
     Indication: CEREBROVASCULAR ACCIDENT
     Route: 065
     Dates: start: 20030101
  8. PREMARIN [Concomitant]
     Indication: MENOPAUSE
     Route: 065
     Dates: start: 19950101, end: 20020101
  9. PROCARDIA [Concomitant]
     Indication: HYPERTENSION
     Route: 065
     Dates: start: 19960101
  10. PRILOSEC [Concomitant]
     Indication: GASTROOESOPHAGEAL REFLUX DISEASE
     Route: 065
     Dates: start: 20030101
  11. LASIX [Concomitant]
     Indication: SWELLING
     Route: 065
     Dates: start: 20030101
  12. LASIX [Concomitant]
     Indication: OEDEMA
     Route: 065
     Dates: start: 20030101
  13. TIMOLOL [Concomitant]
     Indication: GLAUCOMA
     Route: 065
  14. ACTIFED [Concomitant]
     Route: 065
  15. CENTRUM SILVER [Concomitant]
     Route: 065
  16. COLACE [Concomitant]
     Route: 065
  17. ASCORBIC ACID [Concomitant]
     Route: 065
  18. CALCIUM (UNSPECIFIED) [Concomitant]
     Route: 065
  19. VITAMIN E [Concomitant]
     Route: 065

REACTIONS (21)
  - ANXIETY [None]
  - ARTHROPATHY [None]
  - BACK PAIN [None]
  - BLOOD CHOLESTEROL INCREASED [None]
  - BRONCHITIS [None]
  - CEREBRAL ISCHAEMIA [None]
  - CEREBROVASCULAR ACCIDENT [None]
  - CHEST PAIN [None]
  - DEPRESSION [None]
  - DIABETES MELLITUS [None]
  - DRUG HYPERSENSITIVITY [None]
  - GASTRIC DISORDER [None]
  - GASTROOESOPHAGEAL REFLUX DISEASE [None]
  - GLAUCOMA [None]
  - GLUCOSE TOLERANCE IMPAIRED [None]
  - HYPERTENSION [None]
  - OEDEMA [None]
  - PNEUMONIA [None]
  - SPINAL DISORDER [None]
  - SWELLING [None]
  - TRANSIENT ISCHAEMIC ATTACK [None]
